FAERS Safety Report 7313343-9 (Version None)
Quarter: 2011Q1

REPORT INFORMATION
  Report Type: 
  Country: None (occurrence: None)
  Receive Date: 20110217
  Receipt Date: 20110217
  Transmission Date: 20110831
  Serious: No
  Sender: FDA-Public Use
  Company Number: None

PATIENT
  Age: 30 Year
  Sex: Female
  Weight: 54.4316 kg

DRUGS (1)
  1. KENALOG [Suspect]

REACTIONS (5)
  - INJECTION SITE REACTION [None]
  - ANXIETY [None]
  - MENSTRUATION IRREGULAR [None]
  - INJECTION SITE PAIN [None]
  - DEPRESSION [None]
